FAERS Safety Report 6083216-0 (Version None)
Quarter: 2009Q1

REPORT INFORMATION
  Report Type: 
  Country: None (occurrence: None)
  Receive Date: 20090219
  Receipt Date: 20090213
  Transmission Date: 20090719
  Serious: No
  Sender: FDA-Public Use
  Company Number: US-JNJFOC-20090203778

PATIENT
  Sex: Female
  Weight: 49.9 kg

DRUGS (7)
  1. DURAGESIC-100 [Suspect]
     Indication: FIBROMYALGIA
     Dosage: 75 UG/HR AND 50 UG/HR
     Route: 062
  2. OXYCODONE HCL [Concomitant]
     Dosage: 1 IN THE MORNING, 1 IN THE EVENING
     Route: 048
  3. OXYCODONE HCL [Concomitant]
     Indication: PAIN
     Dosage: 5 MG-2 IN THE AFTERNOON
     Route: 048
  4. TIZANIDINE HCL [Concomitant]
     Dosage: 4 MG- 2 IN THE EVENING
     Route: 048
  5. TIZANIDINE HCL [Concomitant]
     Indication: MUSCLE RELAXANT THERAPY
     Dosage: 4 MG TABLET IN THE MORNING
     Route: 048
  6. TOPAMAX [Concomitant]
     Indication: MIGRAINE
     Dosage: 25 MG-3 TABLETS ONCE DAILY
     Route: 048
  7. PROMETHAZINE [Concomitant]
     Indication: NAUSEA
     Route: 048

REACTIONS (2)
  - APPLICATION SITE RASH [None]
  - TREATMENT NONCOMPLIANCE [None]
